FAERS Safety Report 8870649 (Version 1)
Quarter: 2012Q4

REPORT INFORMATION
  Report Type: 
  Country: US (occurrence: US)
  Receive Date: 20121023
  Receipt Date: 20121023
  Transmission Date: 20130627
  Serious: Yes (Other)
  Sender: FDA-Public Use
  Company Number: US-AMGEN-USASP2012003631

PATIENT
  Age: 61 Year
  Sex: Female
  Weight: 99.77 kg

DRUGS (5)
  1. ENBREL [Suspect]
     Indication: PRODUCT USED FOR UNKNOWN INDICATION
     Dosage: 50 mg, 2 times/wk
     Route: 058
  2. DIOVAN [Concomitant]
     Dosage: 40 mg, UNK
     Route: 048
  3. TRAMADOL [Concomitant]
     Dosage: 50 mg, UNK
     Route: 048
  4. SORIATANE [Concomitant]
     Dosage: 10 mg, UNK
     Route: 048
  5. HYDROCODONE/APAP [Concomitant]
     Dosage: UNK
     Route: 048

REACTIONS (2)
  - Cellulitis [Unknown]
  - Nasopharyngitis [Unknown]
